FAERS Safety Report 15273894 (Version 2)
Quarter: 2018Q3

REPORT INFORMATION
  Report Type: Spontaneous
  Country: JP (occurrence: JP)
  Receive Date: 20180813
  Receipt Date: 20180821
  Transmission Date: 20181010
  Serious: Yes (Hospitalization)
  Sender: FDA-Public Use
  Company Number: JP-009507513-1708JPN000030J

PATIENT
  Age: 56 Year
  Sex: Male
  Weight: 56 kg

DRUGS (8)
  1. CALFINA [Concomitant]
     Active Substance: ALFACALCIDOL
     Indication: SQUAMOUS CELL CARCINOMA OF LUNG
     Dosage: 0.5 MICROGRAM, QD
     Route: 048
     Dates: start: 20170120
  2. OXYCONTIN [Concomitant]
     Active Substance: OXYCODONE HYDROCHLORIDE
     Dosage: 30 MG, BID
     Route: 048
     Dates: start: 20170413
  3. KEYTRUDA [Suspect]
     Active Substance: PEMBROLIZUMAB
     Indication: SQUAMOUS CELL CARCINOMA OF LUNG
     Dosage: 200 MG, Q3W
     Route: 041
     Dates: start: 20170209, end: 20170413
  4. LOXOPROFEN NA [Concomitant]
     Active Substance: LOXOPROFEN SODIUM
     Indication: SQUAMOUS CELL CARCINOMA OF LUNG
     Dosage: 60 MG, TID
     Route: 048
     Dates: start: 20170120
  5. OXINORM [Concomitant]
     Indication: SQUAMOUS CELL CARCINOMA OF LUNG
     Dosage: 2.5 MG, PRN
     Route: 048
     Dates: start: 20170208
  6. OXYCONTIN [Concomitant]
     Active Substance: OXYCODONE HYDROCHLORIDE
     Indication: SQUAMOUS CELL CARCINOMA OF LUNG
     Dosage: 25 MG, BID
     Route: 048
     Dates: start: 20170210, end: 20170412
  7. ABRAXANE [Suspect]
     Active Substance: PACLITAXEL
     Indication: SQUAMOUS CELL CARCINOMA OF LUNG
     Dosage: UNK
     Route: 065
  8. ASPARA?CA [Concomitant]
     Active Substance: CALCIUM ASPARTATE
     Indication: SQUAMOUS CELL CARCINOMA OF LUNG
     Dosage: 600 MG, TID
     Route: 048
     Dates: start: 20170120

REACTIONS (4)
  - Hepatic function abnormal [Recovering/Resolving]
  - Rash [Recovered/Resolved]
  - Malaise [Recovered/Resolved]
  - Salivary gland calculus [Recovered/Resolved]

NARRATIVE: CASE EVENT DATE: 20170302
